FAERS Safety Report 17243993 (Version 3)
Quarter: 2020Q1

REPORT INFORMATION
  Report Type: Report from Study
  Country: GB (occurrence: GB)
  Receive Date: 20200107
  Receipt Date: 20200318
  Transmission Date: 20200409
  Serious: Yes (Life-Threatening, Hospitalization)
  Sender: FDA-Public Use
  Company Number: GB-JNJFOC-20200102234

PATIENT
  Age: 67 Year
  Sex: Male
  Weight: 88.5 kg

DRUGS (6)
  1. LENALIDOMIDE [Suspect]
     Active Substance: LENALIDOMIDE
     Indication: PLASMA CELL MYELOMA
     Dosage: DAY 01-14
     Route: 048
     Dates: start: 20190813, end: 20191216
  2. DARATUMUMAB [Suspect]
     Active Substance: DARATUMUMAB
     Indication: PLASMA CELL MYELOMA
     Dosage: DAY 01 OF EACH CYCLE
     Route: 042
     Dates: start: 20190813
  3. DARATUMUMAB [Suspect]
     Active Substance: DARATUMUMAB
     Dosage: DAY 01 OF EACH CYCLE
     Route: 042
     Dates: start: 20191203
  4. BORTEZOMIB. [Suspect]
     Active Substance: BORTEZOMIB
     Indication: PLASMA CELL MYELOMA
     Dosage: DAY 1, 4, 8 AND 15
     Route: 058
     Dates: start: 20190813, end: 20191213
  5. DEXAMETHASONE. [Suspect]
     Active Substance: DEXAMETHASONE
     Indication: PLASMA CELL MYELOMA
     Dosage: DAY 1,4,8,15
     Route: 048
     Dates: start: 20190813, end: 20191213
  6. CYCLOPHOSPHAMIDE. [Suspect]
     Active Substance: CYCLOPHOSPHAMIDE
     Indication: PLASMA CELL MYELOMA
     Dosage: DAY 01 AND 08
     Route: 048
     Dates: start: 20190813, end: 20191210

REACTIONS (1)
  - Infective exacerbation of chronic obstructive airways disease [Recovered/Resolved with Sequelae]

NARRATIVE: CASE EVENT DATE: 20191223
